FAERS Safety Report 18904960 (Version 1)
Quarter: 2021Q1

REPORT INFORMATION
  Report Type: Spontaneous
  Country: US (occurrence: US)
  Receive Date: 20210217
  Receipt Date: 20210217
  Transmission Date: 20210420
  Serious: No
  Sender: FDA-Public Use
  Company Number: None

PATIENT
  Age: 31 Year
  Sex: Male
  Weight: 67 kg

DRUGS (3)
  1. GABAPENTIN 400MG [Concomitant]
     Active Substance: GABAPENTIN
     Dates: start: 20201222
  2. SUBOXONE 8MG?2MG [Concomitant]
     Dates: start: 20200101
  3. MAVYRET [Suspect]
     Active Substance: GLECAPREVIR\PIBRENTASVIR
     Indication: CHRONIC HEPATITIS C
     Route: 048
     Dates: start: 20201225, end: 20210120

REACTIONS (1)
  - Nausea [None]

NARRATIVE: CASE EVENT DATE: 20201225
